FAERS Safety Report 13761289 (Version 2)
Quarter: 2017Q4

REPORT INFORMATION
  Report Type: Report from Study
  Country: FR (occurrence: FR)
  Receive Date: 20170717
  Receipt Date: 20171003
  Transmission Date: 20180320
  Serious: Yes (Other)
  Sender: FDA-Public Use
  Company Number: PHHY2017FR100363

PATIENT
  Age: 53 Year
  Sex: Female
  Weight: 76 kg

DRUGS (1)
  1. ZARZIO [Suspect]
     Active Substance: FILGRASTIM
     Indication: PRODUCT USED FOR UNKNOWN INDICATION
     Dosage: 30 IU, QD
     Route: 058
     Dates: start: 20170110, end: 20170304

REACTIONS (3)
  - Nail disorder [Recovered/Resolved]
  - Onycholysis [Recovered/Resolved]
  - Eczema weeping [Recovered/Resolved]

NARRATIVE: CASE EVENT DATE: 20170306
